FAERS Safety Report 6232926-0 (Version None)
Quarter: 2009Q2

REPORT INFORMATION
  Report Type: 
  Country: None (occurrence: None)
  Receive Date: 20090612
  Receipt Date: 20090421
  Transmission Date: 20091009
  Serious: Yes (Hospitalization)
  Sender: FDA-Public Use
  Company Number: 1-18188919

PATIENT
  Age: 60 Year
  Sex: Female
  Weight: 77.1115 kg

DRUGS (2)
  1. PHENYTOIN SODIUM [Suspect]
     Indication: CONVULSION
     Dosage: 200 MG TWICE DAILY, ORAL
     Route: 048
     Dates: start: 20090414, end: 20090417
  2. DILANTIN [Suspect]
     Indication: CONVULSION
     Dosage: ORAL
     Route: 048
     Dates: start: 20090301, end: 20090401

REACTIONS (5)
  - ERYTHEMA [None]
  - RASH PAPULAR [None]
  - RASH PRURITIC [None]
  - SCRATCH [None]
  - SKIN HAEMORRHAGE [None]
